FAERS Safety Report 17159112 (Version 1)
Quarter: 2019Q4

REPORT INFORMATION
  Report Type: Spontaneous
  Country: US (occurrence: US)
  Receive Date: 20191214
  Receipt Date: 20191214
  Transmission Date: 20200122
  Serious: No
  Sender: FDA-Public Use
  Company Number: None

PATIENT
  Age: 49 Year
  Sex: Female
  Weight: 96.75 kg

DRUGS (4)
  1. VENLAFAXINE HCL ER 75 MG CAP [Suspect]
     Active Substance: VENLAFAXINE HYDROCHLORIDE
     Indication: DEPRESSION
     Dosage: ?          QUANTITY:1 CAPSULE(S);?
     Route: 048
     Dates: end: 20191130
  2. LEVOTHYROXINE. [Concomitant]
     Active Substance: LEVOTHYROXINE
  3. BUPROPION. [Concomitant]
     Active Substance: BUPROPION
  4. LIOTHYRONIN [Concomitant]
     Active Substance: LIOTHYRONINE SODIUM

REACTIONS (12)
  - Suicidal ideation [None]
  - Headache [None]
  - Depressed mood [None]
  - Dizziness [None]
  - Blood pressure increased [None]
  - Chest discomfort [None]
  - Tachycardia [None]
  - Anxiety [None]
  - Vision blurred [None]
  - Dyspnoea [None]
  - Tremor [None]
  - Euphoric mood [None]

NARRATIVE: CASE EVENT DATE: 20191202
